FAERS Safety Report 24590074 (Version 1)
Quarter: 2024Q4

REPORT INFORMATION
  Report Type: Spontaneous
  Country: US (occurrence: None)
  Receive Date: 20241107
  Receipt Date: 20241107
  Transmission Date: 20250115
  Serious: Yes (Other)
  Sender: Public
  Company Number: None

PATIENT
  Age: 16 Year
  Sex: Male
  Weight: 89.2 kg

DRUGS (1)
  1. CIBINQO [Suspect]
     Active Substance: ABROCITINIB
     Indication: Dermatitis atopic
     Dosage: FREQUENCY : DAILY;?
     Route: 048
     Dates: start: 20240801, end: 20240918

REACTIONS (6)
  - Arthralgia [None]
  - Dyspnoea [None]
  - Asthenia [None]
  - Musculoskeletal chest pain [None]
  - Thinking abnormal [None]
  - Aggression [None]

NARRATIVE: CASE EVENT DATE: 20240918
